FAERS Safety Report 21571755 (Version 1)
Quarter: 2022Q4

REPORT INFORMATION
  Report Type: Spontaneous
  Country: US (occurrence: None)
  Receive Date: 20221108
  Receipt Date: 20221108
  Transmission Date: 20230113
  Serious: Yes (Other)
  Sender: FDA-Public Use
  Company Number: None

PATIENT
  Sex: Female

DRUGS (2)
  1. FERRIPROX [Suspect]
     Active Substance: DEFERIPRONE
     Indication: Thalassaemia
     Dates: start: 20160101
  2. FERRIPROX [Suspect]
     Active Substance: DEFERIPRONE
     Indication: Iron overload

REACTIONS (2)
  - Arthralgia [None]
  - Exposure via breast milk [None]

NARRATIVE: CASE EVENT DATE: 20160101
